FAERS Safety Report 8758894 (Version 1)
Quarter: 2012Q4

REPORT INFORMATION
  Report Type: 
  Country: MX (occurrence: MX)
  Receive Date: 20120829
  Receipt Date: 20120829
  Transmission Date: 20130627
  Serious: Yes (Hospitalization)
  Sender: FDA-Public Use
  Company Number: MX-SANOFI-AVENTIS-2012SA058556

PATIENT
  Age: 66 Year
  Sex: Female
  Weight: 50 kg

DRUGS (4)
  1. LANTUS [Suspect]
     Indication: TYPE 2 DIABETES MELLITUS
     Route: 058
     Dates: start: 2009
  2. ENALAPRIL [Concomitant]
     Indication: HYPERTENSION ARTERIAL
     Route: 048
     Dates: start: 1992
  3. NIFEDIPINE [Concomitant]
     Indication: HYPERTENSION ARTERIAL
     Route: 048
  4. INSULIN LISPRO [Concomitant]
     Indication: TYPE 2 DIABETES MELLITUS
     Route: 058
     Dates: start: 2011

REACTIONS (3)
  - Cholelithiasis [Recovered/Resolved]
  - Hyperglycaemia [Not Recovered/Not Resolved]
  - Hyperglycaemia [Recovered/Resolved]
